FAERS Safety Report 17961919 (Version 1)
Quarter: 2020Q2

REPORT INFORMATION
  Report Type: Spontaneous
  Country: US (occurrence: US)
  Receive Date: 20200629
  Receipt Date: 20200629
  Transmission Date: 20200714
  Serious: No
  Sender: FDA-Public Use
  Company Number: None

PATIENT
  Age: 61 Year
  Sex: Male

DRUGS (2)
  1. NAFCILLIN (NAFCILLIN NA 2GM/100ML INJ, BAG) [Suspect]
     Active Substance: NAFCILLIN SODIUM
     Indication: OSTEOMYELITIS
     Dates: start: 20190806, end: 20190904
  2. NAFCILLIN (NAFCILLIN NA 2GM/100ML INJ, BAG) [Suspect]
     Active Substance: NAFCILLIN SODIUM
     Indication: STAPHYLOCOCCAL BACTERAEMIA
     Dates: start: 20190806, end: 20190904

REACTIONS (2)
  - Haemolytic anaemia [None]
  - Acute kidney injury [None]

NARRATIVE: CASE EVENT DATE: 20190806
